FAERS Safety Report 4751715-7 (Version None)
Quarter: 2005Q3

REPORT INFORMATION
  Report Type: 
  Country: None (occurrence: None)
  Receive Date: 20050822
  Receipt Date: 20050822
  Transmission Date: 20060218
  Serious: Yes (Other)
  Sender: FDA-Public Use
  Company Number: None

PATIENT
  Sex: Female
  Weight: 73.9363 kg

DRUGS (1)
  1. LEVAQUIN [Suspect]
     Indication: SINUSITIS
     Dosage: ONE TABLET DAILY PO
     Route: 048
     Dates: start: 20050818, end: 20050819

REACTIONS (8)
  - AGITATION [None]
  - DIZZINESS [None]
  - DYSKINESIA [None]
  - EAR PAIN [None]
  - FATIGUE [None]
  - INSOMNIA [None]
  - PAIN IN JAW [None]
  - SWELLING FACE [None]
